FAERS Safety Report 14571565 (Version 2)
Quarter: 2018Q1

REPORT INFORMATION
  Report Type: Report from Study
  Country: US (occurrence: US)
  Receive Date: 20180226
  Receipt Date: 20180319
  Transmission Date: 20180509
  Serious: Yes (Hospitalization, Other)
  Sender: FDA-Public Use
  Company Number: US-GILEAD-2018-0318416

PATIENT
  Age: 51 Year
  Sex: Female

DRUGS (7)
  1. AMBRISENTAN [Suspect]
     Active Substance: AMBRISENTAN
     Indication: PULMONARY HYPERTENSION
     Dosage: 5 MG, QD
     Route: 065
     Dates: start: 20141021
  2. DILTIAZEM. [Concomitant]
     Active Substance: DILTIAZEM
  3. GABAPENTIN. [Concomitant]
     Active Substance: GABAPENTIN
  4. AMIODARONE [Concomitant]
     Active Substance: AMIODARONE
  5. AMBRISENTAN [Suspect]
     Active Substance: AMBRISENTAN
     Indication: ATRIAL SEPTAL DEFECT
  6. ADCIRCA [Concomitant]
     Active Substance: TADALAFIL
     Indication: PRODUCT USED FOR UNKNOWN INDICATION
     Dosage: 20 MG, QD
     Route: 065
  7. MAGNESIUM [Concomitant]
     Active Substance: MAGNESIUM

REACTIONS (4)
  - Pulmonary oedema [Recovered/Resolved]
  - Atrial septal defect [Recovered/Resolved]
  - Fluid overload [Recovered/Resolved]
  - Condition aggravated [Not Recovered/Not Resolved]
